FAERS Safety Report 4850827-7 (Version None)
Quarter: 2005Q4

REPORT INFORMATION
  Report Type: 
  Country: None (occurrence: None)
  Receive Date: 20051208
  Receipt Date: 20051124
  Transmission Date: 20060501
  Serious: Yes (Hospitalization)
  Sender: FDA-Public Use
  Company Number: SUSI-2005-00855

PATIENT
  Age: 23 Year
  Sex: Female

DRUGS (3)
  1. PENTASA [Suspect]
     Indication: COLITIS ULCERATIVE
     Dosage: 750 MG, 3X/DAY TID; ORAL
     Route: 048
     Dates: start: 20051024, end: 20051112
  2. CIPROFLOXACIN HYDROCHLORIDE [Concomitant]
  3. TRIMEBUTINE MALEATE [Concomitant]

REACTIONS (1)
  - PAIN IN EXTREMITY [None]
